FAERS Safety Report 6627902-X (Version None)
Quarter: 2010Q1

REPORT INFORMATION
  Report Type: 
  Country: None (occurrence: None)
  Receive Date: 20100311
  Receipt Date: 20090309
  Transmission Date: 20100710
  Serious: No
  Sender: FDA-Public Use
  Company Number: A0772244A

PATIENT
  Age: 50 Year
  Sex: Female

DRUGS (1)
  1. NICORETTE [Suspect]
     Dates: start: 20090303, end: 20090303

REACTIONS (2)
  - NAUSEA [None]
  - OROPHARYNGEAL DISCOMFORT [None]
